FAERS Safety Report 8168176-0 (Version None)
Quarter: 2012Q1

REPORT INFORMATION
  Report Type: 
  Country: None (occurrence: None)
  Receive Date: 20120227
  Receipt Date: 20120214
  Transmission Date: 20120608
  Serious: Yes (Hospitalization, Other)
  Sender: FDA-Public Use
  Company Number: PHEH2011US06053

PATIENT
  Sex: Female

DRUGS (5)
  1. GLEEVEC [Suspect]
     Dosage: 400 MG, QD
     Route: 048
     Dates: start: 20111221, end: 20120125
  2. ZOLOFT [Concomitant]
     Dosage: 50 MG, DAILY
  3. GLEEVEC [Suspect]
     Indication: CHRONIC MYELOID LEUKAEMIA
     Dosage: 400 MG, DAILY
     Route: 048
     Dates: start: 20020707, end: 20110829
  4. IMODIUM [Concomitant]
  5. MULTI-VITAMINS [Suspect]

REACTIONS (10)
  - DIVERTICULITIS [None]
  - DYSPEPSIA [None]
  - GASTROINTESTINAL DISORDER [None]
  - FACE OEDEMA [None]
  - DIARRHOEA [None]
  - GASTROINTESTINAL MOTILITY DISORDER [None]
  - BLOOD SODIUM ABNORMAL [None]
  - ELECTROLYTE IMBALANCE [None]
  - RASH [None]
  - ORBITAL OEDEMA [None]
